FAERS Safety Report 24692183 (Version 1)
Quarter: 2024Q4

REPORT INFORMATION
  Report Type: Spontaneous
  Country: US (occurrence: US)
  Receive Date: 20241203
  Receipt Date: 20241203
  Transmission Date: 20250115
  Serious: Yes (Hospitalization, Other)
  Sender: CIPLA
  Company Number: US-CIPLA LTD.-2024US14090

PATIENT

DRUGS (1)
  1. SEVELAMER [Suspect]
     Active Substance: SEVELAMER
     Indication: Hyperphosphataemia
     Dosage: 1600 MILLIGRAM, TID
     Route: 048

REACTIONS (1)
  - Large intestinal ulcer [Unknown]
